FAERS Safety Report 25196214 (Version 1)
Quarter: 2025Q2

REPORT INFORMATION
  Report Type: Spontaneous
  Country: US (occurrence: US)
  Receive Date: 20250415
  Receipt Date: 20250415
  Transmission Date: 20250716
  Serious: Yes (Hospitalization)
  Sender: MERCK SHARP AND DOHME
  Company Number: US-009507513-2273864

PATIENT
  Sex: Female

DRUGS (2)
  1. BRIDION [Suspect]
     Active Substance: SUGAMMADEX SODIUM
  2. BRIDION [Suspect]
     Active Substance: SUGAMMADEX SODIUM

REACTIONS (2)
  - Drug ineffective [Unknown]
  - Drug ineffective [Unknown]
